FAERS Safety Report 4787592-8 (Version None)
Quarter: 2005Q3

REPORT INFORMATION
  Report Type: 
  Country: None (occurrence: None)
  Receive Date: 20050914
  Receipt Date: 20050202
  Transmission Date: 20060218
  Serious: Yes (Other)
  Sender: FDA-Public Use
  Company Number: 163-20785-05020041

PATIENT
  Age: 56 Year
  Sex: Male

DRUGS (13)
  1. THALOMID [Suspect]
     Indication: MULTIPLE MYELOMA
     Dosage: SEE IMAGE
     Route: 048
     Dates: start: 20041127, end: 20041130
  2. THALOMID [Suspect]
     Indication: MULTIPLE MYELOMA
     Dosage: SEE IMAGE
     Route: 048
     Dates: start: 20041214
  3. DEXAMETHASONE [Suspect]
     Indication: MULTIPLE MYELOMA
     Dosage: SEE IMAGE
     Route: 048
     Dates: start: 20041127, end: 20041130
  4. DEXAMETHASONE [Suspect]
     Indication: MULTIPLE MYELOMA
     Dosage: SEE IMAGE
     Route: 048
     Dates: start: 20041214, end: 20041217
  5. PLATINOL [Suspect]
     Indication: MULTIPLE MYELOMA
     Dates: start: 20041127, end: 20041130
  6. ADRIAMYCIN PFS [Suspect]
     Indication: MULTIPLE MYELOMA
     Dates: start: 20041127, end: 20041130
  7. CYTOXAN [Suspect]
     Indication: MULTIPLE MYELOMA
     Dates: start: 20041127, end: 20041130
  8. ETOPOSIDE [Suspect]
     Indication: MULTIPLE MYELOMA
     Dates: start: 20041127, end: 20041130
  9. VELCADE [Suspect]
     Indication: MULTIPLE MYELOMA
     Dosage: DAILY
     Dates: start: 20041124, end: 20041124
  10. VELCADE [Suspect]
     Indication: MULTIPLE MYELOMA
     Dosage: DAILY
     Dates: start: 20041127, end: 20041130
  11. VELCADE [Suspect]
     Indication: MULTIPLE MYELOMA
     Dosage: DAILY
     Dates: start: 20041201, end: 20041201
  12. VELCADE [Suspect]
     Indication: MULTIPLE MYELOMA
     Dosage: DAILY
     Dates: start: 20041204, end: 20041204
  13. LOVENOX [Concomitant]

REACTIONS (3)
  - DEEP VEIN THROMBOSIS [None]
  - PYREXIA [None]
  - SINUSITIS [None]
